FAERS Safety Report 13179449 (Version 1)
Quarter: 2017Q1

REPORT INFORMATION
  Report Type: Spontaneous
  Country: FR (occurrence: FR)
  Receive Date: 20170202
  Receipt Date: 20170202
  Transmission Date: 20170428
  Serious: Yes (Hospitalization, Other)
  Sender: FDA-Public Use
  Company Number: FR-GLAXOSMITHKLINE-FR2017GSK011607

PATIENT
  Age: 78 Year
  Sex: Male

DRUGS (15)
  1. LAMICTAL [Suspect]
     Active Substance: LAMOTRIGINE
     Indication: STATUS EPILEPTICUS
     Dosage: 25 MG, QD
     Route: 048
     Dates: start: 20161024, end: 20161107
  2. LAMICTAL [Suspect]
     Active Substance: LAMOTRIGINE
     Dosage: 50 MG, QD
     Dates: start: 20161108, end: 20161117
  3. KEPPRA [Suspect]
     Active Substance: LEVETIRACETAM
     Indication: STATUS EPILEPTICUS
     Dosage: 500 MG, BID
     Dates: start: 20161024
  4. LEXOMIL [Concomitant]
     Active Substance: BROMAZEPAM
     Dosage: 1.50 MG, 1D
     Dates: start: 20161010
  5. COLCHICINE. [Concomitant]
     Active Substance: COLCHICINE
     Dosage: 1 MG, 1D
     Dates: start: 20161010, end: 20161014
  6. ZOPICLONE [Concomitant]
     Active Substance: ZOPICLONE
     Dosage: 7.5 MG, 1D
     Route: 048
     Dates: start: 20161010
  7. DAFALGAN [Concomitant]
     Active Substance: ACETAMINOPHEN
     Dosage: 1 G, TID
     Dates: start: 20161015
  8. LYRICA [Concomitant]
     Active Substance: PREGABALIN
     Dosage: 25 MG, QD
     Dates: start: 20161024, end: 20161123
  9. VAXIGRIP [Concomitant]
     Active Substance: INFLUENZA VIRUS VACCINE
  10. ATACAND [Concomitant]
     Active Substance: CANDESARTAN CILEXETIL
     Dosage: UNK
     Route: 048
     Dates: start: 20161010, end: 20161117
  11. RIVOTRIL [Concomitant]
     Active Substance: CLONAZEPAM
     Dosage: 5 UNK, TID
     Dates: start: 20161022, end: 20161024
  12. DUROGESIC [Concomitant]
     Active Substance: FENTANYL
     Dosage: 1 UNK, 1D
     Dates: start: 20161014, end: 20161116
  13. LYRICA [Concomitant]
     Active Substance: PREGABALIN
     Dosage: 2 DF, QD
     Dates: start: 20161024, end: 20161108
  14. LYRICA [Concomitant]
     Active Substance: PREGABALIN
     Dosage: 100 MG, QD
     Dates: start: 20161115, end: 20161123
  15. MIDAZOLAM [Concomitant]
     Active Substance: MIDAZOLAM HYDROCHLORIDE
     Dosage: 1 UNK, SINGLE
     Dates: start: 20161022, end: 20161022

REACTIONS (1)
  - Hepatitis [Recovered/Resolved]

NARRATIVE: CASE EVENT DATE: 20161117
